FAERS Safety Report 4900410-X (Version None)
Quarter: 2006Q1

REPORT INFORMATION
  Report Type: 
  Country: None (occurrence: None)
  Receive Date: 20060203
  Receipt Date: 20060124
  Transmission Date: 20060701
  Serious: Yes (Hospitalization)
  Sender: FDA-Public Use
  Company Number: US-JNJFOC-20050100373

PATIENT
  Sex: Female
  Weight: 67.3 kg

DRUGS (14)
  1. RISPERDAL [Suspect]
     Route: 048
  2. RISPERDAL [Suspect]
     Indication: SCHIZOPHRENIA
     Route: 048
  3. BIFEPRUNOX [Suspect]
     Route: 048
  4. BIFEPRUNOX [Suspect]
     Indication: SCHIZOPHRENIA
     Route: 048
  5. PLACEBO [Suspect]
     Route: 048
  6. PLACEBO [Suspect]
     Indication: SCHIZOPHRENIA
     Route: 048
  7. TARIVID [Concomitant]
     Route: 065
  8. FEMODENE [Concomitant]
     Route: 065
  9. FEMODENE [Concomitant]
     Route: 065
  10. DAFLON [Concomitant]
     Route: 065
  11. NOZID [Concomitant]
     Route: 065
  12. CORSODYL [Concomitant]
     Route: 065
  13. AKINETON [Concomitant]
     Dosage: AS NEEDED WITH A MAX DOSE OF TWICE DAILY
     Route: 065
  14. TEMESTA [Concomitant]
     Dosage: AS NEEDED WITH A MAX DOSAGE OF 3MG /DAY.
     Route: 065

REACTIONS (2)
  - HALLUCINATION, AUDITORY [None]
  - HERPES ZOSTER [None]
